FAERS Safety Report 18284093 (Version 1)
Quarter: 2020Q3

REPORT INFORMATION
  Report Type: Spontaneous
  Country: US (occurrence: US)
  Receive Date: 20200918
  Receipt Date: 20200918
  Transmission Date: 20201103
  Serious: No
  Sender: FDA-Public Use
  Company Number: US-PFIZER INC-2020355887

PATIENT
  Age: 63 Year
  Sex: Male
  Weight: 80.74 kg

DRUGS (2)
  1. METHOTREXATE SODIUM. [Suspect]
     Active Substance: METHOTREXATE SODIUM
     Indication: RHEUMATOID ARTHRITIS
     Dosage: 0.8 IU, WEEKLY, (0.8 UNITS UNKNOWN, BY INJECTION EVERY WEDNESDAY)
  2. ORENCIA [Suspect]
     Active Substance: ABATACEPT
     Indication: RHEUMATOID ARTHRITIS
     Dosage: UNK, (INFUSION ONCE MONTHLY, STATES DOSE CAN BE OBTAINED FROM DOCTOR)

REACTIONS (5)
  - Joint lock [Unknown]
  - Fatigue [Unknown]
  - Pain in extremity [Not Recovered/Not Resolved]
  - Condition aggravated [Unknown]
  - Drug ineffective [Unknown]
